FAERS Safety Report 11150535 (Version 2)
Quarter: 2015Q2

REPORT INFORMATION
  Report Type: Report from Study
  Country: US (occurrence: US)
  Receive Date: 20150601
  Receipt Date: 20150615
  Transmission Date: 20150821
  Serious: Yes (Other)
  Sender: FDA-Public Use
  Company Number: US-BEH-2015051372

PATIENT
  Age: 49 Year
  Sex: Male

DRUGS (2)
  1. MONONINE [Suspect]
     Active Substance: COAGULATION FACTOR IX HUMAN
     Indication: PROPHYLAXIS
  2. MONONINE [Suspect]
     Active Substance: COAGULATION FACTOR IX HUMAN
     Indication: PROPHYLAXIS

REACTIONS (5)
  - Headache [Recovering/Resolving]
  - Haemorrhage intracranial [Recovering/Resolving]
  - Fall [Recovering/Resolving]
  - Loss of consciousness [Recovered/Resolved]
  - Memory impairment [Recovering/Resolving]
